FAERS Safety Report 6460746-0 (Version None)
Quarter: 2009Q4

REPORT INFORMATION
  Report Type: 
  Country: None (occurrence: None)
  Receive Date: 20091130
  Receipt Date: 20091119
  Transmission Date: 20100525
  Serious: Yes (Hospitalization)
  Sender: FDA-Public Use
  Company Number: US-ASTRAZENECA-2009SE27638

PATIENT
  Age: 86 Year
  Sex: Male

DRUGS (10)
  1. NEXIUM [Suspect]
     Indication: GASTROOESOPHAGEAL REFLUX DISEASE
     Route: 048
  2. CRESTOR [Concomitant]
     Route: 048
  3. LISINOPRIL [Concomitant]
     Route: 048
  4. PLAVIX [Concomitant]
     Route: 065
  5. ADVAIR DISKUS 100/50 [Concomitant]
     Route: 065
  6. SPIRIVA [Concomitant]
     Route: 065
  7. PREDNISONE [Concomitant]
     Route: 065
  8. RYTHMOL SR [Concomitant]
     Route: 065
  9. AVODART [Concomitant]
     Route: 065
  10. ASPIRIN [Concomitant]
     Route: 065

REACTIONS (6)
  - CARDIAC DISORDER [None]
  - CONTUSION [None]
  - FALL [None]
  - LUNG DISORDER [None]
  - RIB FRACTURE [None]
  - STENT PLACEMENT [None]
